FAERS Safety Report 8849780 (Version 2)
Quarter: 2012Q4

REPORT INFORMATION
  Report Type: 
  Country: AU (occurrence: AU)
  Receive Date: 20121019
  Receipt Date: 20121130
  Transmission Date: 20130627
  Serious: Yes (Hospitalization, Other)
  Sender: FDA-Public Use
  Company Number: PHHY2012AU091912

PATIENT
  Sex: Male

DRUGS (3)
  1. CLOZARIL [Suspect]
     Indication: SCHIZOPHRENIA
     Route: 048
     Dates: end: 20120718
  2. ERYTHROMYCIN [Concomitant]
     Indication: INFECTION PROPHYLAXIS
     Dosage: 250 mg Daily
  3. CLOPINE [Concomitant]

REACTIONS (10)
  - Haemosiderosis [Recovered/Resolved with Sequelae]
  - Hypersplenism [Unknown]
  - Splenomegaly [Recovered/Resolved with Sequelae]
  - Spleen congestion [Unknown]
  - Fungal infection [Unknown]
  - Sickle cell anaemia [Unknown]
  - C-reactive protein decreased [Unknown]
  - White blood cell count increased [Unknown]
  - Platelet count increased [Unknown]
  - Neutrophil count increased [Unknown]
